FAERS Safety Report 18889787 (Version 1)
Quarter: 2021Q1

REPORT INFORMATION
  Report Type: Report from Study
  Country: BR (occurrence: BR)
  Receive Date: 20210213
  Receipt Date: 20210213
  Transmission Date: 20210420
  Serious: Yes (Other)
  Sender: FDA-Public Use
  Company Number: NVSC2021BR031349

PATIENT
  Sex: Female

DRUGS (1)
  1. DIOVAN HCT [Suspect]
     Active Substance: HYDROCHLOROTHIAZIDE\VALSARTAN
     Indication: PRODUCT USED FOR UNKNOWN INDICATION
     Dosage: 1 DF (APPROXIMATELY 11 YEAR AGO)
     Route: 065
     Dates: start: 2011

REACTIONS (1)
  - Deafness [Not Recovered/Not Resolved]

NARRATIVE: CASE EVENT DATE: 2011
